FAERS Safety Report 7963371-5 (Version None)
Quarter: 2011Q4

REPORT INFORMATION
  Report Type: 
  Country: None (occurrence: None)
  Receive Date: 20111122
  Receipt Date: 20110714
  Transmission Date: 20120403
  Serious: No
  Sender: FDA-Public Use
  Company Number: PHHY2011US54680

PATIENT
  Age: 62 Year
  Sex: Female
  Weight: 99.0202 kg

DRUGS (12)
  1. DILANTIN [Concomitant]
  2. ATIVAN [Concomitant]
  3. CALCIUM CARBONATE [Concomitant]
  4. GILENYA [Suspect]
     Indication: MULTIPLE SCLEROSIS
     Dosage: 0.5 MG. QD, ORAL
     Route: 048
     Dates: start: 20110609
  5. PHENOBARBITAL TAB [Concomitant]
  6. DULCOLAX [Concomitant]
  7. FOLVITE (FOLIC ACID) [Concomitant]
  8. NYSTATIN [Concomitant]
  9. COLACE (DOCUSATE SODIUM) [Concomitant]
  10. ACETAMINOPHEN [Concomitant]
  11. LIORESAL [Concomitant]
  12. PROZAC [Concomitant]

REACTIONS (3)
  - DYSPHONIA [None]
  - HEADACHE [None]
  - NECK PAIN [None]
